FAERS Safety Report 13086373 (Version 1)
Quarter: 2017Q1

REPORT INFORMATION
  Report Type: Spontaneous
  Country: JP (occurrence: JP)
  Receive Date: 20170104
  Receipt Date: 20170104
  Transmission Date: 20170428
  Serious: Yes (Death)
  Sender: FDA-Public Use
  Company Number: JP-MALLINCKRODT-T201604228

PATIENT
  Age: 58 Year
  Sex: Male
  Weight: 57 kg

DRUGS (35)
  1. METHADONE [Suspect]
     Active Substance: METHADONE HYDROCHLORIDE
     Dosage: 25 MG (75 MG DAILY DOSE)
     Route: 048
     Dates: start: 20160609, end: 20160630
  2. MINOCYCLINE [Concomitant]
     Active Substance: MINOCYCLINE\MINOCYCLINE HYDROCHLORIDE
     Dosage: 200 MG
     Route: 048
     Dates: start: 20151112, end: 20160204
  3. ACELIO [Concomitant]
     Active Substance: ACETAMINOPHEN
     Indication: ANALGESIC THERAPY
     Dosage: 1000 MG
     Route: 051
     Dates: start: 20160731, end: 20160804
  4. METHADONE [Suspect]
     Active Substance: METHADONE HYDROCHLORIDE
     Indication: CANCER PAIN
     Dosage: 10 MG (30 MG DAILY DOSE)
     Route: 048
     Dates: start: 20151027, end: 20151102
  5. VECTIBIX [Concomitant]
     Active Substance: PANITUMUMAB
     Dosage: UNK
  6. MARCAIN [Concomitant]
     Active Substance: BUPIVACAINE HYDROCHLORIDE
     Dosage: UNK
     Route: 029
     Dates: start: 20160722, end: 20160804
  7. E FEN [Concomitant]
     Dosage: 0.2 MG, PRN
     Route: 002
     Dates: start: 20151027
  8. METHADONE [Suspect]
     Active Substance: METHADONE HYDROCHLORIDE
     Dosage: 55 MG DAILY DOSE
     Route: 048
     Dates: start: 20160415, end: 20160421
  9. METHADONE [Suspect]
     Active Substance: METHADONE HYDROCHLORIDE
     Dosage: 20 MG (60 MG DAILY DOSE)
     Route: 048
     Dates: start: 20160422, end: 20160602
  10. METHADONE [Suspect]
     Active Substance: METHADONE HYDROCHLORIDE
     Dosage: 10 MG (30 MG DAILY DOSE)
     Route: 048
     Dates: start: 20160722, end: 20160730
  11. VECTIBIX [Concomitant]
     Active Substance: PANITUMUMAB
     Dosage: 300 MG
     Route: 051
     Dates: start: 20151211, end: 20151211
  12. LASIX [Concomitant]
     Active Substance: FUROSEMIDE
     Dosage: 20 MG
     Route: 048
     Dates: start: 20160708, end: 20160730
  13. ROHYPNOL [Concomitant]
     Active Substance: FLUNITRAZEPAM
     Dosage: 2 MG
     Route: 051
     Dates: start: 20160731, end: 20160804
  14. UBRETID [Concomitant]
     Active Substance: DISTIGMINE BROMIDE
     Dosage: 5 MG
     Route: 048
     Dates: start: 20151016, end: 20160314
  15. LEVOFLOXACIN HEMIHYDRATE [Concomitant]
     Active Substance: LEVOFLOXACIN
     Dosage: 500 MG
     Route: 048
     Dates: start: 20160205, end: 20160208
  16. FERROUS CITRATE NA [Concomitant]
     Active Substance: SODIUM FERROUS CITRATE
     Dosage: 100 MG
     Route: 048
     Dates: start: 20160609, end: 20160702
  17. PREPENON [Concomitant]
     Active Substance: MORPHINE HYDROCHLORIDE
     Indication: ANALGESIC THERAPY
     Dosage: UNK
     Route: 058
     Dates: start: 20160731, end: 20160804
  18. EBRANTIL [Concomitant]
     Active Substance: URAPIDIL
     Dosage: 30 MG
     Route: 048
     Dates: start: 20151016, end: 20160314
  19. VECTIBIX [Concomitant]
     Active Substance: PANITUMUMAB
     Dosage: 300 MG
     Route: 051
     Dates: start: 20151112, end: 20151112
  20. CELECOX [Concomitant]
     Active Substance: CELECOXIB
     Indication: ANALGESIC THERAPY
     Dosage: 400 MG
     Route: 048
     Dates: start: 20150512, end: 20160730
  21. FENTOS [Concomitant]
     Active Substance: FENTANYL
     Indication: ANALGESIC THERAPY
     Dosage: 16 MG
     Route: 062
     Dates: start: 20150129, end: 20151103
  22. LONSURF [Concomitant]
     Active Substance: TIPIRACIL HYDROCHLORIDE\TRIFLURIDINE
     Dosage: 110 MG
     Route: 048
     Dates: start: 20160307, end: 20160630
  23. MORPHINE HYDROCHLORIDE [Concomitant]
     Active Substance: MORPHINE HYDROCHLORIDE
     Dosage: UNK
     Route: 029
     Dates: start: 20160722, end: 20160804
  24. METHADONE [Suspect]
     Active Substance: METHADONE HYDROCHLORIDE
     Dosage: 15 MG (45 MG DAILY DOSE)
     Route: 048
     Dates: start: 20151103, end: 20160414
  25. METHADONE [Suspect]
     Active Substance: METHADONE HYDROCHLORIDE
     Dosage: 70 MG DAILY DOSE
     Route: 048
     Dates: start: 20160603, end: 20160608
  26. CANDESARTAN [Concomitant]
     Active Substance: CANDESARTAN
     Dosage: 12 MG
     Route: 048
     Dates: end: 20160702
  27. VECTIBIX [Concomitant]
     Active Substance: PANITUMUMAB
     Dosage: 300 MG
     Route: 051
     Dates: start: 20160108, end: 20160108
  28. VECTIBIX [Concomitant]
     Active Substance: PANITUMUMAB
     Dosage: 300 MG
     Route: 051
     Dates: start: 20160122, end: 20160122
  29. STIVARGA [Concomitant]
     Active Substance: REGORAFENIB
     Dosage: 160 MG
     Route: 048
     Dates: start: 20160209, end: 20160306
  30. MAGMITT [Concomitant]
     Active Substance: MAGNESIUM OXIDE
     Dosage: 750 MG
     Route: 048
     Dates: start: 20160624, end: 20160702
  31. METHADONE [Suspect]
     Active Substance: METHADONE HYDROCHLORIDE
     Dosage: 70 MG DAILY DOSE
     Route: 048
     Dates: start: 20160701, end: 20160721
  32. VECTIBIX [Concomitant]
     Active Substance: PANITUMUMAB
     Dosage: 300 MG
     Route: 051
     Dates: start: 20151127, end: 20151127
  33. VECTIBIX [Concomitant]
     Active Substance: PANITUMUMAB
     Dosage: 300 MG
     Route: 051
     Dates: start: 20151225, end: 20151225
  34. SPIRONOLACTONE. [Concomitant]
     Active Substance: SPIRONOLACTONE
     Dosage: 50 MG
     Route: 048
     Dates: start: 20160708, end: 20160722
  35. RHYTHMY [Concomitant]
     Active Substance: RILMAZAFONE HYDROCHLORIDE
     Dosage: 2 MG
     Route: 048
     Dates: start: 20160727, end: 20160730

REACTIONS (2)
  - Somnolence [Recovered/Resolved]
  - Rectal cancer [Fatal]

NARRATIVE: CASE EVENT DATE: 20160625
